FAERS Safety Report 5642099-0 (Version None)
Quarter: 2008Q1

REPORT INFORMATION
  Report Type: 
  Country: None (occurrence: None)
  Receive Date: 20080227
  Receipt Date: 20080216
  Transmission Date: 20080703
  Serious: Yes (Other)
  Sender: FDA-Public Use
  Company Number: US-PFIZER INC-2008016226

PATIENT
  Sex: Male
  Weight: 86.2 kg

DRUGS (14)
  1. CHANTIX [Suspect]
     Indication: SMOKING CESSATION THERAPY
     Route: 048
     Dates: start: 20070101, end: 20071101
  2. NITROGLYCERIN [Concomitant]
  3. OMEGA-3 MARINE TRIGLYCERIDES [Concomitant]
  4. PLAVIX [Concomitant]
  5. ACETYLSALICYLIC ACID [Concomitant]
  6. LISINOPRIL [Concomitant]
  7. TRIAMTERENE [Concomitant]
  8. OMEPRAZOLE [Concomitant]
  9. ATENOLOL [Concomitant]
  10. PROZAC [Concomitant]
  11. SIMVASTATIN [Concomitant]
  12. VICODIN [Concomitant]
  13. XANAX [Concomitant]
  14. REQUIP [Concomitant]

REACTIONS (5)
  - AGGRESSION [None]
  - FEELINGS OF WORTHLESSNESS [None]
  - IMPRISONMENT [None]
  - SUICIDAL IDEATION [None]
  - THINKING ABNORMAL [None]
